FAERS Safety Report 9108820 (Version 1)
Quarter: 2013Q1

REPORT INFORMATION
  Report Type: Spontaneous
  Country: BE (occurrence: BE)
  Receive Date: 20130222
  Receipt Date: 20130222
  Transmission Date: 20140127
  Serious: Yes (Disabling)
  Sender: FDA-Public Use
  Company Number: BE-B.I. PHARMACEUTICALS,INC./RIDGEFIELD-2013-BL-00079BL

PATIENT
  Age: 78 Year
  Sex: Male
  Weight: 102 kg

DRUGS (7)
  1. PRADAXA [Suspect]
     Indication: ATRIAL FIBRILLATION
     Dosage: 220 MG
     Route: 048
     Dates: start: 20130124, end: 20130201
  2. CORDARONE [Concomitant]
     Indication: ATRIAL FIBRILLATION
     Dosage: 142.8571 NR
     Route: 048
     Dates: start: 2006
  3. NEBIVOLOL [Concomitant]
     Indication: HYPERTENSION
     Dosage: 5 NR
     Route: 048
     Dates: start: 2010
  4. NEBIVOLOL [Concomitant]
     Indication: INFARCTION
  5. PRETERAX [Concomitant]
     Indication: HYPERTENSION
     Dosage: 2,5/0,625
     Route: 048
     Dates: start: 2012
  6. UNIDIAMICRON [Concomitant]
     Indication: TYPE 2 DIABETES MELLITUS
     Route: 048
     Dates: start: 2009
  7. FLUDEX [Concomitant]
     Indication: HYPERTENSION
     Route: 048
     Dates: start: 2006

REACTIONS (3)
  - Mobility decreased [Recovered/Resolved]
  - Back pain [Recovered/Resolved]
  - Chest pain [Recovered/Resolved]
